FAERS Safety Report 23353933 (Version 2)
Quarter: 2024Q1

REPORT INFORMATION
  Report Type: Other
  Country: NO (occurrence: NO)
  Receive Date: 20240101
  Receipt Date: 20240119
  Transmission Date: 20240410
  Serious: Yes (Hospitalization, Other)
  Sender: FDA-Public Use
  Company Number: NO-NOMAADVRE-RELISSO-2023-Vj5n56

PATIENT
  Age: 76 Year
  Sex: Male

DRUGS (2)
  1. TACROLIMUS [Interacting]
     Active Substance: TACROLIMUS
     Indication: Renal transplant
     Dosage: UNK
  2. PAXLOVID [Interacting]
     Active Substance: NIRMATRELVIR\RITONAVIR
     Indication: COVID-19
     Dosage: THE PATIENT TOOK 1 TABLET NIRMATRELVIR AND 1 TABLET RITONAVIR TWICE DAILY FOR FIVE DAYS, THEN ASUMAB
     Route: 048
     Dates: start: 20231205, end: 20231213

REACTIONS (6)
  - Dehydration [Recovered/Resolved]
  - Drug interaction [Recovered/Resolved]
  - Anuria [Recovered/Resolved]
  - Acute kidney injury [Recovered/Resolved]
  - Vomiting [Recovered/Resolved]
  - Diarrhoea [Recovered/Resolved]

NARRATIVE: CASE EVENT DATE: 20231205
